FAERS Safety Report 21238639 (Version 3)
Quarter: 2022Q3

REPORT INFORMATION
  Report Type: Spontaneous
  Country: US (occurrence: US)
  Receive Date: 20220822
  Receipt Date: 20220919
  Transmission Date: 20221027
  Serious: Yes (Death)
  Sender: FDA-Public Use
  Company Number: US-SA-SAC20220803000498

PATIENT
  Age: 73 Year
  Sex: Male

DRUGS (16)
  1. DUPIXENT [Suspect]
     Active Substance: DUPILUMAB
     Dosage: 300 MG, QOW
     Route: 058
     Dates: start: 20190620, end: 20220515
  2. QVAR [Concomitant]
     Active Substance: BECLOMETHASONE DIPROPIONATE
     Dosage: 2 PUFFS BID
     Dates: start: 20220502
  3. SPIRIVA [Concomitant]
     Active Substance: TIOTROPIUM BROMIDE MONOHYDRATE
     Dates: start: 20220502
  4. CEPHALEXIN [Concomitant]
     Active Substance: CEPHALEXIN
     Indication: Animal bite
  5. EPIPEN [Concomitant]
     Active Substance: EPINEPHRINE
     Dates: start: 20220502
  6. ZYRTEC [Concomitant]
     Active Substance: CETIRIZINE HYDROCHLORIDE
     Dates: start: 20220502
  7. XYZAL [Concomitant]
     Active Substance: LEVOCETIRIZINE DIHYDROCHLORIDE
     Dates: start: 20220502
  8. ALLOPURINOL [Concomitant]
     Active Substance: ALLOPURINOL
  9. PRAVASTATIN [Concomitant]
     Active Substance: PRAVASTATIN
     Dates: start: 20220502
  10. ATENOLOL [Concomitant]
     Active Substance: ATENOLOL
     Dosage: 25 MG
     Dates: start: 20220502
  11. LOSARTAN [Concomitant]
     Active Substance: LOSARTAN
     Dosage: 12.5 MG
  12. BUPROPION [Concomitant]
     Active Substance: BUPROPION
     Dosage: 150 MG
  13. COLCHICINE [Concomitant]
     Active Substance: COLCHICINE
     Dates: start: 20220502
  14. KEFLEX [Concomitant]
     Active Substance: CEPHALEXIN
  15. INSULIN NOS [Concomitant]
     Active Substance: INSULIN NOS
     Dosage: 28 IU
     Dates: start: 20220502
  16. TIZANIDINE [Concomitant]
     Active Substance: TIZANIDINE
     Dates: start: 20220502

REACTIONS (9)
  - Hiatus hernia [Fatal]
  - Post procedural complication [Fatal]
  - Animal bite [Unknown]
  - Erythema [Unknown]
  - Skin discharge [Unknown]
  - Gout [Unknown]
  - Neuralgia [Recovering/Resolving]
  - Peripheral swelling [Unknown]
  - Skin discolouration [Unknown]
